FAERS Safety Report 4843586-5 (Version None)
Quarter: 2005Q4

REPORT INFORMATION
  Report Type: 
  Country: None (occurrence: None)
  Receive Date: 20051202
  Receipt Date: 20051130
  Transmission Date: 20060501
  Serious: Yes (Life-Threatening)
  Sender: FDA-Public Use
  Company Number: JP-BOEHRINGER INGELHEIM PHARMACEUTICALS, INC.-2005-BP-20793NB

PATIENT
  Sex: Male

DRUGS (7)
  1. MOBIC [Suspect]
     Indication: PROSTATE CANCER
     Route: 048
     Dates: start: 20050809, end: 20051102
  2. LEUPROLIDE ACETATE [Suspect]
     Indication: PROSTATE CANCER
     Route: 058
     Dates: start: 20011101, end: 20050825
  3. ODYNE [Suspect]
     Indication: PROSTATE CANCER
     Route: 048
     Dates: start: 20050706, end: 20051003
  4. DICLOFENAC SODIUM [Suspect]
     Indication: PROSTATE CANCER
     Route: 054
     Dates: start: 20050809
  5. MOSAPRIDE CITRATE [Concomitant]
     Route: 048
  6. TAMSULOSIN HYDROCHLORIDE [Concomitant]
     Route: 048
     Dates: start: 20050809, end: 20051102
  7. FERROUS CITRATE [Concomitant]
     Route: 048
     Dates: start: 20050908, end: 20051002

REACTIONS (6)
  - APLASTIC ANAEMIA [None]
  - HAEMOLYTIC ANAEMIA [None]
  - HERPES VIRUS INFECTION [None]
  - METASTASES TO BONE [None]
  - PYREXIA [None]
  - VOMITING [None]
